FAERS Safety Report 9758399 (Version 2)
Quarter: 2014Q2

REPORT INFORMATION
  Report Type: Report from Study
  Country: US (occurrence: US)
  Receive Date: 20131216
  Receipt Date: 20140422
  Transmission Date: 20141212
  Serious: Yes (Death)
  Sender: FDA-Public Use
  Company Number: US-SA-2013SA129339

PATIENT
  Age: 68 Year
  Sex: Male

DRUGS (26)
  1. CABAZITAXEL [Suspect]
     Indication: PROSTATE CANCER METASTATIC
     Route: 042
     Dates: start: 20130917, end: 20130917
  2. CABAZITAXEL [Suspect]
     Indication: PROSTATE CANCER METASTATIC
     Route: 042
     Dates: start: 20131029, end: 20131029
  3. PREDNISONE [Suspect]
     Indication: PROSTATE CANCER METASTATIC
  4. ATIVAN [Concomitant]
     Dates: start: 2003
  5. CARDIZEM CD [Concomitant]
     Dates: start: 2011
  6. CELEXA [Concomitant]
     Route: 048
     Dates: start: 2012
  7. LUPRON [Concomitant]
     Route: 048
     Dates: start: 20121120
  8. NEXIUM [Concomitant]
     Route: 048
     Dates: start: 2003
  9. DENOSUMAB [Concomitant]
     Route: 048
     Dates: start: 20121120
  10. SOTALOL [Concomitant]
     Route: 048
     Dates: start: 2011
  11. VOLTAREN [Concomitant]
     Route: 061
     Dates: start: 2012
  12. ASPIRIN [Concomitant]
     Route: 048
     Dates: start: 2011
  13. CALCIUM [Concomitant]
     Indication: PROPHYLAXIS
     Route: 048
     Dates: start: 20121120
  14. CENTRUM SILVER [Concomitant]
     Indication: PROPHYLAXIS
     Route: 048
     Dates: start: 2008
  15. HERBAL PREPARATION [Concomitant]
     Indication: PROPHYLAXIS
     Route: 048
     Dates: start: 2013
  16. MAGNESIUM OXIDE [Concomitant]
     Indication: PROPHYLAXIS
     Route: 048
     Dates: start: 201111
  17. VITAMIN B COMPLEX [Concomitant]
     Indication: PROPHYLAXIS
     Route: 048
     Dates: start: 201111
  18. VITAMIN D3 [Concomitant]
     Indication: PROPHYLAXIS
     Route: 048
     Dates: start: 201111
  19. CELEBREX [Concomitant]
     Route: 048
     Dates: start: 2009
  20. CORTIZONE [Concomitant]
     Route: 042
     Dates: start: 2011
  21. ALEVE [Concomitant]
     Route: 048
     Dates: start: 2013, end: 20130912
  22. OXYCODONE [Concomitant]
     Route: 048
     Dates: start: 20130912
  23. LOPERAMIDE [Concomitant]
     Route: 048
     Dates: start: 20130924
  24. COMPAZINE [Concomitant]
     Route: 048
     Dates: start: 20130922
  25. SIMETHICONE [Concomitant]
     Route: 048
     Dates: start: 20131002
  26. ONDANSETRON [Concomitant]
     Route: 048
     Dates: start: 20131015

REACTIONS (1)
  - Death [Fatal]
